FAERS Safety Report 5832463-9 (Version None)
Quarter: 2008Q3

REPORT INFORMATION
  Report Type: 
  Country: None (occurrence: None)
  Receive Date: 20080731
  Receipt Date: 20080717
  Transmission Date: 20090109
  Serious: Yes (Hospitalization, Other)
  Sender: FDA-Public Use
  Company Number: 2008SP011063

PATIENT
  Age: 56 Year
  Sex: Male

DRUGS (1)
  1. PEGINTERFERON ALFA-2B (S-P) (PEGINTERFERON ALFA-2B) [Suspect]
     Indication: MALIGNANT MELANOMA

REACTIONS (1)
  - REHABILITATION THERAPY [None]
